FAERS Safety Report 24706283 (Version 1)
Quarter: 2024Q4

REPORT INFORMATION
  Report Type: Report from Study
  Country: CA (occurrence: CA)
  Receive Date: 20241206
  Receipt Date: 20241206
  Transmission Date: 20250115
  Serious: Yes (Other)
  Sender: EMD SERONO INC
  Company Number: CA-Merck Healthcare KGaA-2024057650

PATIENT
  Age: 54 Year
  Sex: Female

DRUGS (1)
  1. MAVENCLAD [Suspect]
     Active Substance: CLADRIBINE
     Indication: Multiple sclerosis
     Dosage: YEAR ONE WEEK ONE THERAPY: 20 MG ON DAY 1 TO 3 AND 10 MG ON DAY 4 TO 5
     Dates: start: 20241007, end: 20241011

REACTIONS (4)
  - White blood cell count decreased [Unknown]
  - Neutropenia [Recovering/Resolving]
  - Lymphocyte count decreased [Recovering/Resolving]
  - Haemoglobin decreased [Unknown]

NARRATIVE: CASE EVENT DATE: 20241016
